FAERS Safety Report 6062393-1 (Version None)
Quarter: 2009Q1

REPORT INFORMATION
  Report Type: 
  Country: None (occurrence: None)
  Receive Date: 20090203
  Receipt Date: 20090129
  Transmission Date: 20090719
  Serious: Yes (Hospitalization)
  Sender: FDA-Public Use
  Company Number: US-JNJFOC-20090200024

PATIENT
  Sex: Male

DRUGS (4)
  1. LEVAQUIN [Suspect]
     Indication: BRONCHITIS
     Route: 065
  2. LEVAQUIN [Suspect]
     Indication: SINUSITIS
     Route: 065
  3. AVELOX [Suspect]
     Indication: BRONCHITIS
     Route: 065
  4. AVELOX [Suspect]
     Indication: SINUSITIS
     Route: 065

REACTIONS (6)
  - CONFUSIONAL STATE [None]
  - DRUG INEFFECTIVE [None]
  - NERVOUSNESS [None]
  - PARANOIA [None]
  - SINUSITIS [None]
  - TREMOR [None]
